FAERS Safety Report 10231498 (Version 1)
Quarter: 2014Q2

REPORT INFORMATION
  Report Type: Report from Study
  Country: US (occurrence: US)
  Receive Date: 20140611
  Receipt Date: 20140611
  Transmission Date: 20141212
  Serious: Yes (Hospitalization, Other)
  Sender: FDA-Public Use
  Company Number: US-TAKEDA-2014TUS004613

PATIENT
  Age: 42 Year
  Sex: Male
  Weight: 125 kg

DRUGS (5)
  1. COLCHICINE [Suspect]
     Indication: PROPHYLAXIS
     Dosage: 0.6 MG, QD
     Route: 048
     Dates: start: 20120204, end: 20130208
  2. COLCHICINE [Suspect]
     Dosage: 0.6 MG, QD
     Route: 048
     Dates: start: 20130810, end: 20131006
  3. VITAMIN C                          /00008001/ [Concomitant]
     Route: 065
  4. NAPROXEN SODIUM [Concomitant]
     Route: 065
  5. ALLOPURINOL [Concomitant]
     Dosage: 300 MG, QD
     Route: 048
     Dates: start: 20130204

REACTIONS (3)
  - Renal failure acute [Recovered/Resolved with Sequelae]
  - Flank pain [Unknown]
  - Condition aggravated [Unknown]
